FAERS Safety Report 6674509-4 (Version None)
Quarter: 2010Q2

REPORT INFORMATION
  Report Type: 
  Country: None (occurrence: None)
  Receive Date: 20100409
  Receipt Date: 20100330
  Transmission Date: 20101027
  Serious: Yes (Other)
  Sender: FDA-Public Use
  Company Number: US-PFIZER INC-2010040625

PATIENT
  Age: 54 Year
  Sex: Male
  Weight: 98.1 kg

DRUGS (8)
  1. BLINDED *NO SUBJECT DRUG [Suspect]
     Indication: RENAL CELL CARCINOMA
     Dosage: UNK
     Route: 048
     Dates: start: 20090708
  2. BLINDED *PLACEBO [Suspect]
     Indication: RENAL CELL CARCINOMA
     Dosage: UNK
     Route: 048
     Dates: start: 20090708
  3. BLINDED *SORAFENIB [Suspect]
     Indication: RENAL CELL CARCINOMA
     Dosage: UNK
     Route: 048
     Dates: start: 20090708
  4. BLINDED SUNITINIB MALATE [Suspect]
     Indication: RENAL CELL CARCINOMA
     Dosage: UNK
     Route: 048
     Dates: start: 20090708
  5. HYDROCHLOROTHIAZIDE [Suspect]
     Dosage: 25 MG, DAILY
  6. LISINOPRIL [Suspect]
     Dosage: 10 MG, DAILY
  7. TOPROL-XL [Suspect]
     Dosage: 225 MG, DAILY
  8. TRAZODONE [Suspect]
     Dosage: 100 MG, DAILY

REACTIONS (1)
  - SYNCOPE [None]
